FAERS Safety Report 25723747 (Version 1)
Quarter: 2025Q3

REPORT INFORMATION
  Report Type: Spontaneous
  Country: CN (occurrence: CN)
  Receive Date: 20250825
  Receipt Date: 20250825
  Transmission Date: 20251021
  Serious: Yes (Hospitalization)
  Sender: NOVARTIS
  Company Number: CN-002147023-NVSC2025CN132606

PATIENT
  Age: 4 Day
  Sex: Female
  Weight: 3.02 kg

DRUGS (1)
  1. TOBRAMYCIN [Suspect]
     Active Substance: TOBRAMYCIN
     Indication: Eye discharge
     Dosage: 0.100 ML, TID (EXTERNAL USE)
     Route: 065
     Dates: start: 20250805, end: 20250805

REACTIONS (1)
  - Erythema of eyelid [Recovering/Resolving]

NARRATIVE: CASE EVENT DATE: 20250805
